FAERS Safety Report 6410730-8 (Version None)
Quarter: 2009Q4

REPORT INFORMATION
  Report Type: 
  Country: None (occurrence: None)
  Receive Date: 20091022
  Receipt Date: 20091021
  Transmission Date: 20100525
  Serious: Yes (Hospitalization, Other)
  Sender: FDA-Public Use
  Company Number: US-ROXANE LABORATORIES, INC.-2009-RO-01080RO

PATIENT
  Age: 72 Year
  Sex: Female

DRUGS (5)
  1. METHOTREXATE [Suspect]
     Indication: RHEUMATOID ARTHRITIS
     Route: 048
  2. METHOTREXATE [Suspect]
     Route: 048
  3. METHOTREXATE [Suspect]
     Dosage: 20 MG
     Route: 048
  4. NEUPOGEN [Concomitant]
     Indication: PANCYTOPENIA
  5. DARBEPOETIN [Concomitant]
     Indication: PANCYTOPENIA

REACTIONS (7)
  - ACCIDENTAL OVERDOSE [None]
  - DIARRHOEA [None]
  - DRUG PRESCRIBING ERROR [None]
  - DRUG TOXICITY [None]
  - MUCOSAL INFLAMMATION [None]
  - PANCYTOPENIA [None]
  - RESPIRATORY TRACT INFECTION [None]
